FAERS Safety Report 7635631-9 (Version None)
Quarter: 2011Q3

REPORT INFORMATION
  Report Type: 
  Country: None (occurrence: None)
  Receive Date: 20110726
  Receipt Date: 20110715
  Transmission Date: 20111222
  Serious: Yes (Other)
  Sender: FDA-Public Use
  Company Number: PHHY2011DE17560

PATIENT
  Sex: Male

DRUGS (2)
  1. SANDOSTATIN LAR [Suspect]
     Indication: ACROMEGALY
     Dosage: 10 MG, QMO
     Route: 030
     Dates: start: 20080901
  2. SANDOSTATIN LAR [Suspect]
     Dosage: 10 MG, EVERY 28 DAYS
     Route: 030

REACTIONS (2)
  - PROSTATITIS [None]
  - PROSTATIC SPECIFIC ANTIGEN INCREASED [None]
